FAERS Safety Report 6905981-X (Version None)
Quarter: 2010Q3

REPORT INFORMATION
  Report Type: 
  Country: None (occurrence: None)
  Receive Date: 20100803
  Receipt Date: 20100803
  Transmission Date: 20110219
  Serious: Yes (Hospitalization)
  Sender: FDA-Public Use
  Company Number: None

PATIENT
  Age: 58 Year
  Sex: Male
  Weight: 97.3 kg

DRUGS (1)
  1. VANCOMYCIN [Suspect]
     Indication: CELLULITIS
     Dosage: 1.25 GM EVERY DAY IV
     Route: 042
     Dates: start: 20100708, end: 20100712

REACTIONS (3)
  - LINEAR IGA DISEASE [None]
  - PRURITUS [None]
  - URTICARIA [None]
